FAERS Safety Report 19272013 (Version 1)
Quarter: 2021Q2

REPORT INFORMATION
  Report Type: Spontaneous
  Country: CN (occurrence: CN)
  Receive Date: 20210519
  Receipt Date: 20210519
  Transmission Date: 20210717
  Serious: Yes (Hospitalization, Other)
  Sender: FDA-Public Use
  Company Number: CN-INGENUS PHARMACEUTICALS, LLC-2021INF000040

PATIENT
  Age: 32 Year
  Sex: Female

DRUGS (7)
  1. LYSINE ACETYLSALICYLATE [Concomitant]
     Active Substance: ASPIRIN DL-LYSINE
     Indication: BODY TEMPERATURE INCREASED
     Dosage: UNK
     Route: 065
  2. CEPHALOSPORINS [Concomitant]
     Active Substance: UNSPECIFIED INGREDIENT
     Indication: BODY TEMPERATURE INCREASED
     Dosage: UNK
     Route: 065
  3. TACROLIMUS. [Suspect]
     Active Substance: TACROLIMUS
     Indication: SYSTEMIC LUPUS ERYTHEMATOSUS
     Dosage: UNK
     Route: 065
  4. CYCLOPHOSPHAMIDE. [Suspect]
     Active Substance: CYCLOPHOSPHAMIDE
     Indication: SYSTEMIC LUPUS ERYTHEMATOSUS
     Dosage: UNK
     Route: 065
  5. RIBAVIRIN. [Concomitant]
     Active Substance: RIBAVIRIN
     Indication: BODY TEMPERATURE INCREASED
     Dosage: UNK
     Route: 065
  6. CYCLOSPORINE. [Suspect]
     Active Substance: CYCLOSPORINE
     Indication: SYSTEMIC LUPUS ERYTHEMATOSUS
     Dosage: UNK
     Route: 065
  7. METHOTREXATE. [Suspect]
     Active Substance: METHOTREXATE
     Indication: SYSTEMIC LUPUS ERYTHEMATOSUS
     Dosage: UNK
     Route: 065

REACTIONS (2)
  - Cushing^s syndrome [Unknown]
  - Hypertrophic cardiomyopathy [Recovering/Resolving]
